FAERS Safety Report 12218204 (Version 1)
Quarter: 2016Q1

REPORT INFORMATION
  Report Type: Spontaneous
  Country: IL (occurrence: IL)
  Receive Date: 20160329
  Receipt Date: 20160329
  Transmission Date: 20160526
  Serious: Yes (Hospitalization)
  Sender: FDA-Public Use
  Company Number: IL-ALLERGAN-1602800US

PATIENT
  Age: 68 Year
  Sex: Male

DRUGS (1)
  1. TIMOLOL MALEATE. [Suspect]
     Active Substance: TIMOLOL MALEATE
     Indication: GLAUCOMA
     Dosage: UNK, UNKNOWN
     Route: 047

REACTIONS (4)
  - Bundle branch block right [Not Recovered/Not Resolved]
  - Electrocardiogram PR prolongation [Recovered/Resolved]
  - Head injury [Unknown]
  - Sinus bradycardia [Recovered/Resolved]
